FAERS Safety Report 24053098 (Version 3)
Quarter: 2024Q3

REPORT INFORMATION
  Report Type: Spontaneous
  Country: PK (occurrence: PK)
  Receive Date: 20240705
  Receipt Date: 20240911
  Transmission Date: 20241017
  Serious: Yes (Other)
  Sender: AMGEN
  Company Number: PK-PFIZER INC-PV202300086034

PATIENT
  Age: 37 Year
  Sex: Female

DRUGS (16)
  1. ENBREL [Suspect]
     Active Substance: ETANERCEPT
     Indication: Rheumatoid arthritis
     Dosage: 50 MG, WEEKLY
     Route: 058
     Dates: start: 202201
  2. ENBREL [Suspect]
     Active Substance: ETANERCEPT
     Dosage: 50 MG, WEEKLY
     Route: 058
     Dates: start: 20230515
  3. CAC [Concomitant]
     Dosage: 1 DF, 1X/DAY (CAC-1000)
  4. CELBEXX [Concomitant]
     Dosage: 200 MG, 1X/DAY (0-0-0-1, AFTER MEAL)
  5. DELTACORTRIL [Concomitant]
     Active Substance: PREDNISOLONE
     Dosage: 5 MG, 1X/DAY (1-0-0-0, AFTER MEAL)
  6. FERINJECT [Concomitant]
     Active Substance: FERRIC CARBOXYMALTOSE
     Dosage: 1 INJ (IV), ONCE A MONTH
     Route: 042
  7. FOLIC ACID [Concomitant]
     Active Substance: FOLIC ACID
     Dosage: 5 MG, 1X/DAY (0-1-0-0)
  8. HYDROXYCHLOROQUINE SULFATE [Concomitant]
     Active Substance: HYDROXYCHLOROQUINE SULFATE
     Dosage: 200 MG, 1X/DAY (0-0-1-0, AFTER MEAL)
  9. FOLIC ACID\IRON POLYMALTOSE [Concomitant]
     Active Substance: FOLIC ACID\IRON POLYMALTOSE
     Dosage: UNK, 1X/DAY (0-1-0-0, BEFORE MEAL)
  10. PANADOL [Concomitant]
     Active Substance: ACETAMINOPHEN
     Dosage: 1 DF, 1X/DAY (AFTER MEAL, WHEN REQUIRED)
  11. Risek [Concomitant]
     Dosage: 1 DF, 1X/DAY (BEFORE MEAL, WHEN REQUIRED)
  12. SULFASALAZINE [Concomitant]
     Active Substance: SULFASALAZINE
     Dosage: 1000 MG, 2X/DAY (500 MG, 2-0-2-0, AFTER MEAL)
  13. SULFASALAZINE [Concomitant]
     Active Substance: SULFASALAZINE
     Dosage: UNK (2-0-2-0, AFTER MEAL)
     Route: 065
  14. Sunny d [Concomitant]
     Dosage: UNK
  15. VITRUM CALCIUM [Concomitant]
     Dosage: 1 DF, 1X/DAY (AFTER MEAL)
  16. DICLOFENAC SODIUM [Concomitant]
     Active Substance: DICLOFENAC\DICLOFENAC SODIUM
     Dosage: UNK

REACTIONS (4)
  - Haemoglobin decreased [Unknown]
  - Maternal exposure during pregnancy [Unknown]
  - Red blood cell sedimentation rate increased [Unknown]
  - Condition aggravated [Unknown]

NARRATIVE: CASE EVENT DATE: 20240501
